FAERS Safety Report 7656897-5 (Version None)
Quarter: 2011Q3

REPORT INFORMATION
  Report Type: 
  Country: None (occurrence: None)
  Receive Date: 20110804
  Receipt Date: 20110722
  Transmission Date: 20111222
  Serious: Yes (Other)
  Sender: FDA-Public Use
  Company Number: US-CELGENEUS-163-21880-11072725

PATIENT
  Sex: Male
  Weight: 63.6 kg

DRUGS (3)
  1. ASPIRIN [Concomitant]
     Route: 065
  2. REVLIMID [Suspect]
     Indication: MULTIPLE MYELOMA
     Dosage: 5 MILLIGRAM
     Route: 048
     Dates: start: 20100914
  3. DEXAMETHASONE [Concomitant]
     Route: 065

REACTIONS (3)
  - DECREASED APPETITE [None]
  - ATRIOVENTRICULAR BLOCK [None]
  - PYREXIA [None]
